FAERS Safety Report 6529518-2 (Version None)
Quarter: 2010Q1

REPORT INFORMATION
  Report Type: 
  Country: None (occurrence: None)
  Receive Date: 20100104
  Receipt Date: 20091217
  Transmission Date: 20100710
  Serious: Yes (Life-Threatening)
  Sender: FDA-Public Use
  Company Number: DSA_42265_2009

PATIENT
  Age: 92 Year
  Sex: Female

DRUGS (3)
  1. DILTIAZEM [Suspect]
     Indication: HEART RATE
     Dosage: (200 MG QD ORAL)
     Route: 048
     Dates: start: 20091124, end: 20091205
  2. BISOPROLOL FUMARATE [Suspect]
     Indication: HEART RATE
     Dosage: (5 MG QD ORAL)
     Route: 048
     Dates: end: 20091205
  3. PROPRANOLOL [Suspect]
     Indication: ANXIETY
     Dosage: (10 MG BID ORAL)
     Route: 048
     Dates: start: 20091202, end: 20091205

REACTIONS (4)
  - ANXIETY [None]
  - ATRIOVENTRICULAR BLOCK COMPLETE [None]
  - DEPRESSED LEVEL OF CONSCIOUSNESS [None]
  - HYPOTENSION [None]
